FAERS Safety Report 17415989 (Version 1)
Quarter: 2020Q1

REPORT INFORMATION
  Report Type: Spontaneous
  Country: CN (occurrence: CN)
  Receive Date: 20200213
  Receipt Date: 20200213
  Transmission Date: 20200409
  Serious: Yes (Hospitalization, Disabling)
  Sender: FDA-Public Use
  Company Number: CN-B.I. PHARMACEUTICALS,INC./RIDGEFIELD-2020-BI-007372

PATIENT
  Age: 66 Year
  Sex: Female
  Weight: 44 kg

DRUGS (24)
  1. COMPOUND AMINO ACID (18AA-II) [Concomitant]
     Route: 042
     Dates: start: 20190812, end: 20190822
  2. POTASSIUM CHLORIDE. [Concomitant]
     Active Substance: POTASSIUM CHLORIDE
     Route: 042
     Dates: start: 20190812, end: 20190822
  3. SODIUM CHLORIDE. [Concomitant]
     Active Substance: SODIUM CHLORIDE
     Route: 042
     Dates: start: 20190808, end: 20190809
  4. MEGESTROL [Concomitant]
     Active Substance: MEGESTROL
     Indication: APPETITE DISORDER
     Dosage: DISPERSIBLE TABLETS
     Route: 048
     Dates: start: 20190807, end: 20190818
  5. SODIUM GLYCEROPHOSPHATE [Concomitant]
     Active Substance: SODIUM GLYCEROPHOSPHATE
     Indication: SUPPLEMENTATION THERAPY
     Route: 042
     Dates: start: 20190812, end: 20190822
  6. CAVAN [Concomitant]
     Indication: NUTRITIONAL SUPPLEMENTATION
     Route: 042
     Dates: start: 20190807, end: 20190807
  7. GILOTRIF [Suspect]
     Active Substance: AFATINIB
     Indication: LUNG NEOPLASM MALIGNANT
     Route: 048
     Dates: start: 20190813, end: 20190818
  8. SOLUVIT [Concomitant]
     Active Substance: VITAMINS
     Indication: VITAMIN SUPPLEMENTATION
     Route: 042
     Dates: start: 20190807, end: 20190807
  9. SODIUM CHLORIDE. [Concomitant]
     Active Substance: SODIUM CHLORIDE
     Indication: SUPPLEMENTATION THERAPY
     Route: 042
     Dates: start: 20190807, end: 20190807
  10. VITALIPID [Concomitant]
     Active Substance: ERGOCALCIFEROL\PHYTONADIONE\RETINOL\TOCOPHEROL
     Indication: VITAMIN SUPPLEMENTATION
     Route: 042
     Dates: start: 20190807, end: 20190807
  11. GLUCOSE [Concomitant]
     Active Substance: DEXTROSE
     Indication: NUTRITIONAL SUPPLEMENTATION
     Route: 042
     Dates: start: 20190808, end: 20190809
  12. CALCIUM GLUCONATE. [Concomitant]
     Active Substance: CALCIUM GLUCONATE
     Indication: MINERAL SUPPLEMENTATION
     Route: 042
     Dates: start: 20190808, end: 20190809
  13. DEXAMETHASONE ACETATE [Concomitant]
     Active Substance: DEXAMETHASONE ACETATE
     Indication: INTERSTITIAL LUNG DISEASE
     Route: 048
     Dates: start: 20190813, end: 20190818
  14. XARELTO [Concomitant]
     Active Substance: RIVAROXABAN
     Indication: THROMBOSIS
     Route: 048
     Dates: start: 20190805, end: 20190904
  15. SOLUVIT [Concomitant]
     Active Substance: VITAMINS
     Route: 042
     Dates: start: 20190808, end: 20190809
  16. SODIUM CHLORIDE. [Concomitant]
     Active Substance: SODIUM CHLORIDE
     Indication: SUPPLEMENTATION THERAPY
     Route: 048
     Dates: start: 20190806, end: 20190818
  17. GLUCOSE [Concomitant]
     Active Substance: DEXTROSE
     Route: 042
     Dates: start: 20190808, end: 20190809
  18. CALCIUM GLUCONATE. [Concomitant]
     Active Substance: CALCIUM GLUCONATE
     Route: 042
     Dates: start: 20190812, end: 20190822
  19. COMPOUND AMINO ACID (18AA-II) [Concomitant]
     Indication: NUTRITIONAL SUPPLEMENTATION
     Dosage: DRIP
     Route: 042
     Dates: start: 20190808, end: 20190809
  20. POTASSIUM CHLORIDE. [Concomitant]
     Active Substance: POTASSIUM CHLORIDE
     Route: 042
     Dates: start: 20190808, end: 20190809
  21. GLUCOSE [Concomitant]
     Active Substance: DEXTROSE
     Route: 042
     Dates: start: 20190812, end: 20190822
  22. GLUCOSE [Concomitant]
     Active Substance: DEXTROSE
     Route: 042
     Dates: start: 20190812, end: 20190822
  23. SOLUVIT [Concomitant]
     Active Substance: VITAMINS
     Route: 042
     Dates: start: 20190812, end: 20190822
  24. POTASSIUM CHLORIDE. [Concomitant]
     Active Substance: POTASSIUM CHLORIDE
     Indication: MINERAL SUPPLEMENTATION
     Route: 042
     Dates: start: 20190807, end: 20190807

REACTIONS (4)
  - Amylase increased [Recovering/Resolving]
  - Lipase increased [Recovering/Resolving]
  - Abdominal pain [Recovering/Resolving]
  - Pneumonia [Recovering/Resolving]

NARRATIVE: CASE EVENT DATE: 20190818
